FAERS Safety Report 5946040-2 (Version None)
Quarter: 2008Q4

REPORT INFORMATION
  Report Type: 
  Country: None (occurrence: None)
  Receive Date: 20081106
  Receipt Date: 20081106
  Transmission Date: 20090506
  Serious: Yes (Death)
  Sender: FDA-Public Use
  Company Number: None

PATIENT
  Age: 53 Year
  Sex: Male
  Weight: 82.55 kg

DRUGS (2)
  1. THEOPHYLLINE [Suspect]
     Indication: CARDIAC STRESS TEST
     Dosage: 300 MG BID PO
     Route: 048
     Dates: start: 20080521, end: 20081105
  2. DIPYRIDAMOLE [Suspect]
     Dosage: 46.6 MG ONCE IV
     Route: 042
     Dates: start: 20081105, end: 20081105

REACTIONS (4)
  - ARRHYTHMIA [None]
  - CARDIO-RESPIRATORY ARREST [None]
  - LABELLED DRUG-DRUG INTERACTION MEDICATION ERROR [None]
  - NO THERAPEUTIC RESPONSE [None]
